FAERS Safety Report 4619902-6 (Version None)
Quarter: 2005Q1

REPORT INFORMATION
  Report Type: 
  Country: None (occurrence: None)
  Receive Date: 20050328
  Receipt Date: 20050316
  Transmission Date: 20050727
  Serious: Yes (Other)
  Sender: FDA-Public Use
  Company Number: 200510828JP

PATIENT
  Age: 56 Year
  Sex: Female
  Weight: 46 kg

DRUGS (17)
  1. ARAVA [Suspect]
     Indication: RHEUMATOID ARTHRITIS
     Route: 048
     Dates: start: 20031219, end: 20040205
  2. PREDNISOLONE [Suspect]
     Indication: RHEUMATOID ARTHRITIS
     Route: 048
     Dates: start: 20031204, end: 20041203
  3. PREDNISOLONE [Concomitant]
     Route: 048
     Dates: start: 20021205, end: 20040204
  4. LOXONIN [Concomitant]
     Indication: RHEUMATOID ARTHRITIS
     Route: 048
     Dates: start: 20021205
  5. SELBEX [Concomitant]
     Indication: PROPHYLAXIS AGAINST GASTROINTESTINAL ULCER
     Route: 048
     Dates: start: 20021205
  6. BIOFERMIN [Concomitant]
     Indication: INTESTINAL FUNCTIONAL DISORDER
     Route: 048
     Dates: start: 20021205
  7. GASTER [Concomitant]
     Indication: PROPHYLAXIS AGAINST GASTROINTESTINAL ULCER
     Route: 048
     Dates: start: 20051205
  8. FERROMIA [Concomitant]
     Indication: ANAEMIA
     Route: 048
     Dates: start: 20030508
  9. KETOPROFEN [Concomitant]
     Indication: RHEUMATOID ARTHRITIS
     Dates: start: 20021205
  10. MUCODYNE [Concomitant]
     Indication: BRONCHIECTASIS
     Route: 048
     Dates: start: 20030508
  11. BONALON [Concomitant]
     Indication: OSTEOPOROSIS
     Route: 048
     Dates: start: 20030508
  12. LENDORM [Concomitant]
     Indication: INSOMNIA
     Dosage: DOSE: PER-REQUEST MEDICATION FOR 7 TIMES
     Route: 048
     Dates: start: 20031225, end: 20040105
  13. PREDONINE [Concomitant]
     Indication: RHEUMATOID ARTHRITIS
     Dates: start: 20040205
  14. CYANOCOBALAMIN [Concomitant]
     Indication: PARAESTHESIA
     Route: 048
     Dates: start: 20050205
  15. VITANEURIN [Concomitant]
     Indication: PARAESTHESIA
     Dosage: DOSE: 3 CAPSULES A DAY
     Route: 048
  16. STRONG NEO-MINOPHAGEN C [Concomitant]
     Dates: start: 20040510
  17. INSULIN [Concomitant]
     Indication: DIABETES MELLITUS

REACTIONS (9)
  - ALANINE AMINOTRANSFERASE INCREASED [None]
  - ASPARTATE AMINOTRANSFERASE INCREASED [None]
  - DIABETES MELLITUS [None]
  - GAMMA-GLUTAMYLTRANSFERASE INCREASED [None]
  - HEPATITIS C [None]
  - HYPOAESTHESIA [None]
  - NEUROLOGICAL EXAMINATION ABNORMAL [None]
  - PARAESTHESIA [None]
  - RHEUMATOID ARTHRITIS [None]
